FAERS Safety Report 9549231 (Version 1)
Quarter: 2013Q3

REPORT INFORMATION
  Report Type: Spontaneous
  Country: FR (occurrence: FR)
  Receive Date: 20130924
  Receipt Date: 20130924
  Transmission Date: 20140515
  Serious: Yes (Death, Hospitalization, Other)
  Sender: FDA-Public Use
  Company Number: FR-GILEAD-2013-0083940

PATIENT
  Sex: Female

DRUGS (1)
  1. EVIPLERA [Suspect]
     Indication: HIV INFECTION

REACTIONS (2)
  - Dengue fever [Fatal]
  - Hepatitis fulminant [Unknown]
